FAERS Safety Report 24439436 (Version 3)
Quarter: 2024Q4

REPORT INFORMATION
  Report Type: Report from Study
  Country: US (occurrence: US)
  Receive Date: 20241015
  Receipt Date: 20241215
  Transmission Date: 20250114
  Serious: No
  Sender: SUNOVION
  Company Number: US-SUMITOMO PHARMA SWITZERLAND GMBH-2024SPA003984

PATIENT

DRUGS (1)
  1. ORGOVYX [Suspect]
     Active Substance: RELUGOLIX
     Indication: Prostate cancer
     Dosage: 120 MG, QD
     Route: 048
     Dates: start: 20241014

REACTIONS (9)
  - Erectile dysfunction [Unknown]
  - Pollakiuria [Unknown]
  - Dizziness [Unknown]
  - Blood pressure decreased [Unknown]
  - Adverse reaction [Unknown]
  - Pain [Unknown]
  - Hot flush [Unknown]
  - Fatigue [Unknown]
  - Incorrect dose administered [Unknown]
